FAERS Safety Report 8176760-3 (Version None)
Quarter: 2012Q1

REPORT INFORMATION
  Report Type: 
  Country: None (occurrence: None)
  Receive Date: 20120301
  Receipt Date: 20120220
  Transmission Date: 20120608
  Serious: Yes (Congenital Anomaly, Other)
  Sender: FDA-Public Use
  Company Number: US-FRI-1000028143

PATIENT
  Sex: Male
  Weight: 3.4 kg

DRUGS (7)
  1. VITAMIN B-12 [Concomitant]
     Route: 064
  2. LEXAPRO [Suspect]
     Route: 064
     Dates: end: 20080401
  3. VITAMIN AND MINERAL PRENATAL SUPPLEMENT W/ FOLIC ACID CAP [Concomitant]
     Route: 064
     Dates: start: 20080529
  4. FOLIC ACID [Concomitant]
     Route: 064
  5. FERROUS SULFATE TAB [Concomitant]
     Route: 064
  6. ASCORBIC ACID [Concomitant]
     Route: 064
  7. AMOXICILLIN [Concomitant]
     Route: 064
     Dates: start: 20080812, end: 20080819

REACTIONS (5)
  - PYELOCALIECTASIS [None]
  - TRANSPOSITION OF THE GREAT VESSELS [None]
  - DOUBLE OUTLET RIGHT VENTRICLE [None]
  - VENTRICULAR EXTRASYSTOLES [None]
  - VENTRICULAR SEPTAL DEFECT [None]
